FAERS Safety Report 11059696 (Version 1)
Quarter: 2015Q2

REPORT INFORMATION
  Report Type: Spontaneous
  Country: DE (occurrence: DE)
  Receive Date: 20150423
  Receipt Date: 20150423
  Transmission Date: 20150821
  Serious: Yes (Hospitalization)
  Sender: FDA-Public Use
  Company Number: GXKR2015DE002108

PATIENT

DRUGS (20)
  1. LAMOTRIGIN HEXAL [Interacting]
     Active Substance: LAMOTRIGINE
     Dosage: 400 MG, UNK
     Route: 065
     Dates: end: 20080102
  2. PHENYTOIN. [Interacting]
     Active Substance: PHENYTOIN
     Dosage: 400 MG, UNK
     Dates: end: 20081227
  3. TORASEMID [Concomitant]
     Active Substance: TORSEMIDE
     Dosage: 5 MG, UNK
  4. NACL [Concomitant]
     Active Substance: SODIUM CHLORIDE
     Dosage: 6 DF, UNK
  5. ACIMETHIN [Concomitant]
     Dosage: 6 DF, UNK
  6. LAMOTRIGIN HEXAL [Interacting]
     Active Substance: LAMOTRIGINE
     Dosage: 200 MG, UNK
     Route: 065
     Dates: end: 20080117
  7. PHENYTOIN. [Interacting]
     Active Substance: PHENYTOIN
     Dosage: 425 MG, UNK
     Dates: start: 20080404
  8. PHENYTOIN. [Interacting]
     Active Substance: PHENYTOIN
     Dosage: 375 MG, UNK
     Dates: start: 20080405
  9. FRISIUM [Concomitant]
     Active Substance: CLOBAZAM
     Dosage: 10 MG, UNK
     Dates: start: 20080405
  10. PHENYTOIN. [Interacting]
     Active Substance: PHENYTOIN
     Indication: PRODUCT USED FOR UNKNOWN INDICATION
     Dosage: 475 MG, UNK
     Dates: end: 20081226
  11. PHENYTOIN. [Interacting]
     Active Substance: PHENYTOIN
     Dosage: 350 MG, UNK
     Dates: start: 20080321, end: 20080321
  12. FRISIUM [Concomitant]
     Active Substance: CLOBAZAM
     Dosage: 5 MG, UNK
     Dates: start: 20080321, end: 20080404
  13. PHENYTOIN. [Interacting]
     Active Substance: PHENYTOIN
     Dosage: 500 MG, UNK
     Dates: start: 20080117, end: 20080117
  14. FRISIUM [Concomitant]
     Active Substance: CLOBAZAM
     Dosage: 10 MG, UNK
     Dates: end: 20080321
  15. LAMOTRIGIN HEXAL [Suspect]
     Active Substance: LAMOTRIGINE
     Indication: PRODUCT USED FOR UNKNOWN INDICATION
     Dosage: 425 MG, UNK
     Route: 065
     Dates: start: 200801
  16. LAMOTRIGIN HEXAL [Interacting]
     Active Substance: LAMOTRIGINE
     Dosage: 350 MG, UNK
     Route: 065
     Dates: end: 20071120
  17. FRAXIPARIN [Concomitant]
     Active Substance: NADROPARIN CALCIUM
     Dosage: 0.4 MG, UNK
  18. PHENYTOIN. [Interacting]
     Active Substance: PHENYTOIN
     Dosage: 325 MG, UNK
     Dates: start: 20080321
  19. METOPROLOL [Concomitant]
     Active Substance: METOPROLOL
     Dosage: 47.5 MG, UNK
  20. ZOPICLON STADA [Concomitant]
     Dosage: 7.5 MG, UNK

REACTIONS (1)
  - Generalised tonic-clonic seizure [Recovered/Resolved]

NARRATIVE: CASE EVENT DATE: 20080128
